FAERS Safety Report 20046470 (Version 3)
Quarter: 2021Q4

REPORT INFORMATION
  Report Type: Report from Study
  Country: AT (occurrence: None)
  Receive Date: 20211109
  Receipt Date: 20211113
  Transmission Date: 20220303
  Serious: Yes (Hospitalization)
  Sender: FDA-Public Use
  Company Number: AT-ROCHE-2949887

PATIENT
  Age: 63 Year
  Sex: Male

DRUGS (2)
  1. OBINUTUZUMAB [Suspect]
     Active Substance: OBINUTUZUMAB
     Indication: Chronic lymphocytic leukaemia
     Dosage: 1000 MG, D1; 1000 MG, D8 + D15 I.V. CYCLE 2 - 6: 1000 MG, D1 I.V. (AS PER PROTOCOL)?THE LAST DOSE OF
     Route: 042
  2. VENETOCLAX [Suspect]
     Active Substance: VENETOCLAX
     Indication: Chronic lymphocytic leukaemia
     Dosage: THE LAST DOSE OF VENETCOLAX WAS 200 MG ON 28/OCT/2021
     Route: 048

REACTIONS (1)
  - Troponin T increased [Recovered/Resolved]

NARRATIVE: CASE EVENT DATE: 20211029
